FAERS Safety Report 8046809-7 (Version None)
Quarter: 2012Q1

REPORT INFORMATION
  Report Type: 
  Country: None (occurrence: None)
  Receive Date: 20120116
  Receipt Date: 20120109
  Transmission Date: 20120608
  Serious: No
  Sender: FDA-Public Use
  Company Number: US-BIOGENIDEC-2012BI001064

PATIENT
  Age: 42 Year
  Sex: Female

DRUGS (2)
  1. TYSABRI [Suspect]
     Indication: MULTIPLE SCLEROSIS
     Route: 042
     Dates: start: 20100319, end: 20100813
  2. TYSABRI [Suspect]
     Route: 042
     Dates: start: 20101105

REACTIONS (3)
  - MIGRAINE [None]
  - FEELING HOT [None]
  - INFLUENZA LIKE ILLNESS [None]
